FAERS Safety Report 17407308 (Version 17)
Quarter: 2021Q3

REPORT INFORMATION
  Report Type: Report from Study
  Country: US (occurrence: US)
  Receive Date: 20200212
  Receipt Date: 20210824
  Transmission Date: 20211014
  Serious: Yes (Hospitalization, Other)
  Sender: FDA-Public Use
  Company Number: US-AEGERION PHARMACEUTICAL, INC-AEGR004656

PATIENT
  Age: 2 Year
  Sex: Male
  Weight: 20.5 kg

DRUGS (8)
  1. METRELEPTIN [Suspect]
     Active Substance: METRELEPTIN
     Dosage: 1.4 MILLIGRAM, QD
     Route: 058
  2. METRELEPTIN [Suspect]
     Active Substance: METRELEPTIN
     Dosage: 1.5 MILLIGRAM (0.3ML)
     Route: 058
     Dates: start: 202107
  3. METRELEPTIN [Suspect]
     Active Substance: METRELEPTIN
     Indication: CONGENITAL GENERALISED LIPODYSTROPHY
     Dosage: 1.23 MILLIGRAM, QD
     Route: 058
     Dates: start: 20170601
  4. AFRIN [Concomitant]
     Active Substance: OXYMETAZOLINE
     Indication: PRODUCT USED FOR UNKNOWN INDICATION
     Dosage: 1 SPRAY NOSTRILS, BOTH QHS
     Route: 045
  5. METRELEPTIN [Suspect]
     Active Substance: METRELEPTIN
     Dosage: 1.24 (0.25 ML) MILLIGRAM, QD
     Route: 058
     Dates: start: 20200217
  6. MULTIVITAMINS PLUS IRON [Concomitant]
     Active Substance: IRON\VITAMINS
     Indication: PRODUCT USED FOR UNKNOWN INDICATION
     Dosage: 1 TABLET, QD
     Route: 048
  7. METRELEPTIN [Suspect]
     Active Substance: METRELEPTIN
     Dosage: 1.54MG (0.31ML)
     Route: 058
     Dates: end: 2021
  8. BACTERIOSTATIC WATER [Concomitant]
     Active Substance: WATER
     Indication: PRODUCT USED FOR UNKNOWN INDICATION

REACTIONS (20)
  - Breathing-related sleep disorder [Recovered/Resolved]
  - Hypertriglyceridaemia [Recovering/Resolving]
  - Nasal congestion [Unknown]
  - Weight increased [Unknown]
  - Tonsillar hypertrophy [Recovered/Resolved]
  - Treatment noncompliance [Unknown]
  - Diet noncompliance [Unknown]
  - Product use complaint [Unknown]
  - Needle issue [Unknown]
  - Hepatosplenomegaly [Unknown]
  - Insulin resistance [Unknown]
  - Nasal mucosal hypertrophy [Unknown]
  - Sleep apnoea syndrome [Unknown]
  - Adenoidal hypertrophy [Recovered/Resolved]
  - Therapy interrupted [Unknown]
  - Product dose omission issue [Unknown]
  - Macroglossia [Unknown]
  - Respiratory distress [Recovered/Resolved]
  - Skin discolouration [Not Recovered/Not Resolved]
  - Aggression [Unknown]

NARRATIVE: CASE EVENT DATE: 201911
